FAERS Safety Report 20998710 (Version 8)
Quarter: 2022Q4

REPORT INFORMATION
  Report Type: Report from Study
  Country: US (occurrence: US)
  Receive Date: 20220623
  Receipt Date: 20221217
  Transmission Date: 20230113
  Serious: No
  Sender: FDA-Public Use
  Company Number: US-NOVARTISTESTPH-NVSC2022US143142

PATIENT
  Age: 54 Year
  Sex: Female

DRUGS (1)
  1. KESIMPTA [Suspect]
     Active Substance: OFATUMUMAB
     Indication: Relapsing multiple sclerosis
     Dosage: 20 MG, QMO
     Route: 058
     Dates: start: 20220628

REACTIONS (5)
  - Localised infection [Unknown]
  - Feeling abnormal [Unknown]
  - Dreamy state [Unknown]
  - Inappropriate schedule of product administration [Unknown]
  - Limb discomfort [Unknown]

NARRATIVE: CASE EVENT DATE: 20221001
